FAERS Safety Report 9779141 (Version 1)
Quarter: 2013Q4

REPORT INFORMATION
  Report Type: Spontaneous
  Country: PL (occurrence: PL)
  Receive Date: 20131223
  Receipt Date: 20131223
  Transmission Date: 20140711
  Serious: Yes (Disabling)
  Sender: FDA-Public Use
  Company Number: PL-B.I. PHARMACEUTICALS,INC./RIDGEFIELD-2013-BI-42874PN

PATIENT
  Age: 60 Year
  Sex: Female

DRUGS (7)
  1. PRADAXA [Suspect]
     Indication: ATRIAL FIBRILLATION
     Dosage: 300 MG
     Route: 048
     Dates: start: 20131119, end: 20131213
  2. DILTIAZEM [Concomitant]
     Indication: HYPERTENSIVE HEART DISEASE
     Dosage: 360 MG
     Route: 048
     Dates: start: 20100602
  3. DILTIAZEM [Concomitant]
     Indication: CARDIAC FAILURE
  4. SPIRONOLACTON [Concomitant]
     Indication: HYPERTENSIVE HEART DISEASE
     Dosage: 25 MG
     Route: 048
     Dates: start: 20130602
  5. SPIRONOLACTON [Concomitant]
     Indication: CARDIAC FAILURE
  6. SIMVASTATIN [Concomitant]
     Indication: HYPERCHOLESTEROLAEMIA
     Dosage: 20 NR
     Route: 048
     Dates: start: 20130602
  7. METYPRED/ METHYLPREDNISOLONE [Concomitant]
     Indication: ASTHMA
     Dosage: 4 MG
     Route: 048

REACTIONS (2)
  - Eye haemorrhage [Not Recovered/Not Resolved]
  - Blindness [Not Recovered/Not Resolved]
